FAERS Safety Report 13355342 (Version 1)
Quarter: 2017Q1

REPORT INFORMATION
  Report Type: Spontaneous
  Country: US (occurrence: US)
  Receive Date: 20170321
  Receipt Date: 20170321
  Transmission Date: 20170429
  Serious: Yes (Life-Threatening, Hospitalization, Disabling)
  Sender: FDA-Public Use
  Company Number: None

PATIENT
  Age: 96 Year
  Sex: Male
  Weight: 89.36 kg

DRUGS (8)
  1. XARELTO [Suspect]
     Active Substance: RIVAROXABAN
  2. TORSEMIDE. [Concomitant]
     Active Substance: TORSEMIDE
  3. VITAMIN D3 [Concomitant]
     Active Substance: CHOLECALCIFEROL
  4. WARFARIN [Concomitant]
     Active Substance: WARFARIN
  5. OCUVITZ [Concomitant]
  6. FINASTERIDE. [Concomitant]
     Active Substance: FINASTERIDE
  7. POTASSIUM [Concomitant]
     Active Substance: POTASSIUM
  8. ATENOLOL. [Concomitant]
     Active Substance: ATENOLOL

REACTIONS (7)
  - Respiratory failure [None]
  - Skin discolouration [None]
  - Cardiac failure [None]
  - Fluid retention [None]
  - Abasia [None]
  - Pain [None]
  - Internal haemorrhage [None]

NARRATIVE: CASE EVENT DATE: 20160401
